FAERS Safety Report 24049155 (Version 1)
Quarter: 2024Q3

REPORT INFORMATION
  Report Type: Spontaneous
  Country: US (occurrence: US)
  Receive Date: 20240704
  Receipt Date: 20240704
  Transmission Date: 20241017
  Serious: Yes (Hospitalization, Other)
  Sender: ALKEM
  Company Number: US-ALKEM LABORATORIES LIMITED-US-ALKEM-2024-13986

PATIENT
  Sex: Male
  Weight: 68.027 kg

DRUGS (1)
  1. DALFAMPRIDINE [Suspect]
     Active Substance: DALFAMPRIDINE
     Indication: Hereditary spastic paraplegia
     Dosage: 10 MILLIGRAM
     Route: 048
     Dates: start: 20240322, end: 20240405

REACTIONS (7)
  - Tachycardia [Not Recovered/Not Resolved]
  - Mydriasis [Not Recovered/Not Resolved]
  - Hallucination [Not Recovered/Not Resolved]
  - Psychotic disorder [Not Recovered/Not Resolved]
  - Delirium [Not Recovered/Not Resolved]
  - Agitation [Not Recovered/Not Resolved]
  - Grandiosity [Not Recovered/Not Resolved]
